FAERS Safety Report 7757293-2 (Version None)
Quarter: 2011Q3

REPORT INFORMATION
  Report Type: 
  Country: None (occurrence: None)
  Receive Date: 20110916
  Receipt Date: 20110914
  Transmission Date: 20111222
  Serious: Yes (Hospitalization, Other)
  Sender: FDA-Public Use
  Company Number: JP-BRACCO-005141

PATIENT
  Sex: Female
  Weight: 44 kg

DRUGS (5)
  1. IOPAMIDOL [Suspect]
     Indication: PANCREATIC CARCINOMA
     Dosage: ADMINISTERED INTO THE RIGHT ANTECUBITAL VEIN AT A RATE OF 3 ML/SEC FOR 33 SECONDS
     Route: 042
     Dates: start: 20110816, end: 20110816
  2. IOPAMIDOL [Suspect]
     Indication: COMPUTERISED TOMOGRAM
     Dosage: ADMINISTERED INTO THE RIGHT ANTECUBITAL VEIN AT A RATE OF 3 ML/SEC FOR 33 SECONDS
     Route: 042
     Dates: start: 20110816, end: 20110816
  3. BERIZYM [Concomitant]
     Dates: start: 20101217
  4. GEMZAR [Concomitant]
     Dates: start: 20101224
  5. TOUGHMAC E [Concomitant]
     Dates: start: 20101217

REACTIONS (5)
  - BLOOD PRESSURE DECREASED [None]
  - FEELING ABNORMAL [None]
  - OXYGEN SATURATION DECREASED [None]
  - GENERALISED ERYTHEMA [None]
  - VOMITING [None]
